FAERS Safety Report 24252828 (Version 1)
Quarter: 2024Q3

REPORT INFORMATION
  Report Type: Spontaneous
  Country: US (occurrence: US)
  Receive Date: 20240827
  Receipt Date: 20240827
  Transmission Date: 20241017
  Serious: No
  Sender: MYLAN
  Company Number: US-MYLANLABS-2024M1074407

PATIENT
  Sex: Female

DRUGS (1)
  1. ELESTRIN [Suspect]
     Active Substance: ESTRADIOL
     Indication: Product used for unknown indication
     Dosage: UNK, QD (ONE SQUIRT TOPICALLY DAILY 0.06 PERCENT)
     Route: 061

REACTIONS (2)
  - Wrong technique in device usage process [Unknown]
  - Device delivery system issue [Unknown]
